FAERS Safety Report 6204020-6 (Version None)
Quarter: 2009Q2

REPORT INFORMATION
  Report Type: 
  Country: None (occurrence: None)
  Receive Date: 20090526
  Receipt Date: 20090526
  Transmission Date: 20091009
  Serious: No
  Sender: FDA-Public Use
  Company Number: None

PATIENT
  Age: 63 Year
  Sex: Male
  Weight: 92.5338 kg

DRUGS (1)
  1. CYCLOBENZAPRINE [Suspect]
     Indication: NERVE COMPRESSION
     Dosage: 1  3 TIMES A DAY IM
     Route: 030
     Dates: start: 20090509, end: 20090525

REACTIONS (1)
  - PRURITUS [None]
